FAERS Safety Report 25656559 (Version 2)
Quarter: 2025Q3

REPORT INFORMATION
  Report Type: Spontaneous
  Country: BR (occurrence: BR)
  Receive Date: 20250807
  Receipt Date: 20250902
  Transmission Date: 20251020
  Serious: Yes (Death, Other)
  Sender: PFIZER
  Company Number: BR-TAKEDA-2025TUS069406

PATIENT

DRUGS (1)
  1. ADCETRIS [Suspect]
     Active Substance: BRENTUXIMAB VEDOTIN
     Indication: Gastric cancer
     Route: 065

REACTIONS (2)
  - Death [Fatal]
  - Off label use [Unknown]
